FAERS Safety Report 4435248-3 (Version None)
Quarter: 2004Q3

REPORT INFORMATION
  Report Type: 
  Country: None (occurrence: None)
  Receive Date: 20040827
  Receipt Date: 20040819
  Transmission Date: 20050211
  Serious: Yes (Hospitalization)
  Sender: FDA-Public Use
  Company Number: SE-GLAXOSMITHKLINE-B0343427A

PATIENT
  Age: 1 Day
  Sex: Male
  Weight: 2.5 kg

DRUGS (1)
  1. SEROXAT [Suspect]
     Indication: DEPRESSION
     Dosage: 20MG PER DAY
     Route: 048
     Dates: start: 20040301, end: 20040326

REACTIONS (11)
  - DRUG EXPOSURE DURING PREGNANCY [None]
  - DRUG WITHDRAWAL CONVULSIONS [None]
  - HYPOGLYCAEMIA [None]
  - MUSCULOSKELETAL STIFFNESS [None]
  - MYOCLONUS [None]
  - PREMATURE BABY [None]
  - RETCHING [None]
  - TREMOR [None]
  - UMBILICAL HERNIA [None]
  - VOMITING [None]
  - WEIGHT INCREASED [None]
